FAERS Safety Report 5233973-8 (Version None)
Quarter: 2007Q1

REPORT INFORMATION
  Report Type: 
  Country: None (occurrence: None)
  Receive Date: 20070208
  Receipt Date: 20070129
  Transmission Date: 20070707
  Serious: Yes (Death, Hospitalization)
  Sender: FDA-Public Use
  Company Number: US-PFIZER INC-2006148871

PATIENT
  Age: 61 Year
  Sex: Female

DRUGS (4)
  1. NIFEDIPINE [Suspect]
     Route: 048
  2. SERTRALINE [Suspect]
     Route: 048
  3. ATORVASTATIN CALCIUM [Suspect]
     Route: 048
  4. VENLAFAXINE HCL [Suspect]
     Route: 048

REACTIONS (4)
  - BEZOAR [None]
  - MULTI-ORGAN FAILURE [None]
  - OVERDOSE [None]
  - SHOCK [None]
